FAERS Safety Report 14631416 (Version 1)
Quarter: 2018Q1

REPORT INFORMATION
  Report Type: Spontaneous
  Country: FR (occurrence: FR)
  Receive Date: 20180313
  Receipt Date: 20180313
  Transmission Date: 20180509
  Serious: Yes (Hospitalization)
  Sender: FDA-Public Use
  Company Number: FR-PFIZER INC-2018097335

PATIENT
  Age: 73 Year
  Sex: Female

DRUGS (10)
  1. NOVATREX NOS [Suspect]
     Active Substance: AZITHROMYCIN OR METHOTREXATE SODIUM
     Indication: RHEUMATOID ARTHRITIS
     Dosage: 15 MG, WEEKLY
     Route: 048
     Dates: start: 20180125, end: 20180201
  2. OMEPRAZOLE MYLAN /00661201/ [Concomitant]
     Active Substance: OMEPRAZOLE
     Dosage: 80 MG, 1X/DAY
     Route: 042
     Dates: start: 20171225, end: 20180202
  3. SKENAN [Concomitant]
     Active Substance: MORPHINE SULFATE
     Dosage: 20 MG, 1X/DAY
     Route: 048
     Dates: start: 20170123, end: 20180202
  4. CALCIPARINE [Concomitant]
     Active Substance: HEPARIN CALCIUM
     Dosage: UNK
     Route: 058
     Dates: start: 20180119, end: 20180206
  5. CORTANCYL [Concomitant]
     Active Substance: PREDNISONE
     Dosage: 5 MG, 1X/DAY
     Route: 048
     Dates: start: 20180123
  6. GABAPENTINE ARROW [Concomitant]
     Active Substance: GABAPENTIN
     Dosage: 1200 MG, 1X/DAY
     Route: 048
     Dates: start: 20180123, end: 20180204
  7. LOXEN L P [Concomitant]
     Active Substance: NICARDIPINE HYDROCHLORIDE
     Dosage: 50 MG, 1X/DAY
     Dates: start: 20180119, end: 20180202
  8. FUROSEMIDE RENAUDIN [Concomitant]
     Active Substance: FUROSEMIDE
     Dosage: 40 MG, 1X/DAY
     Route: 042
     Dates: start: 20171230
  9. CIPROFLOXACINE KABI [Interacting]
     Active Substance: CIPROFLOXACIN
     Indication: INFECTION
     Dosage: 800 MG, 1X/DAY
     Route: 042
     Dates: start: 20180122, end: 20180130
  10. FENOFIBRATE ARROW [Concomitant]
     Dosage: 160 MG, 1X/DAY
     Route: 048

REACTIONS (3)
  - Drug interaction [Not Recovered/Not Resolved]
  - Renal failure [Recovered/Resolved]
  - Bone marrow failure [Not Recovered/Not Resolved]

NARRATIVE: CASE EVENT DATE: 20180131
